FAERS Safety Report 9280150 (Version 1)
Quarter: 2013Q2

REPORT INFORMATION
  Report Type: Spontaneous
  Country: CA (occurrence: CA)
  Receive Date: 20130509
  Receipt Date: 20130509
  Transmission Date: 20140414
  Serious: Yes (Other)
  Sender: FDA-Public Use
  Company Number: CA-AMGEN-CANSP2013032078

PATIENT
  Age: 63 Year
  Sex: Female
  Weight: 56.82 kg

DRUGS (1)
  1. PROLIA [Suspect]
     Indication: OSTEOPOROSIS POSTMENOPAUSAL
     Dosage: UNK
     Dates: start: 20121127

REACTIONS (10)
  - Depression [Unknown]
  - Fatigue [Unknown]
  - Myalgia [Unknown]
  - Arthralgia [Unknown]
  - Bone pain [Unknown]
  - Dizziness [Unknown]
  - Amnesia [Unknown]
  - Insomnia [Unknown]
  - Dyspepsia [Unknown]
  - Feeling cold [Unknown]
